FAERS Safety Report 24953896 (Version 2)
Quarter: 2025Q1

REPORT INFORMATION
  Report Type: Spontaneous
  Country: AU (occurrence: AU)
  Receive Date: 20250211
  Receipt Date: 20250213
  Transmission Date: 20250409
  Serious: Yes (Hospitalization)
  Sender: STRIDES
  Company Number: None

PATIENT
  Age: 8 Decade
  Sex: Male

DRUGS (2)
  1. PREDNISOLONE [Suspect]
     Active Substance: PREDNISOLONE
     Indication: Hypersensitivity pneumonitis
     Route: 065
  2. PERHEXILINE [Concomitant]
     Active Substance: PERHEXILINE
     Indication: Angina pectoris
     Route: 065

REACTIONS (4)
  - Blood glucose fluctuation [Unknown]
  - Glycosylated haemoglobin increased [Unknown]
  - Hypoglycaemia [Unknown]
  - Hyperglycaemia [Unknown]
